FAERS Safety Report 23785382 (Version 1)
Quarter: 2024Q2

REPORT INFORMATION
  Report Type: Spontaneous
  Country: US (occurrence: US)
  Receive Date: 20240425
  Receipt Date: 20240425
  Transmission Date: 20240715
  Serious: Yes (Other)
  Sender: FDA-Public Use
  Company Number: US-INSUD PHARMA-2404US03389

PATIENT

DRUGS (1)
  1. TESTOSTERONE CYPIONATE [Suspect]
     Active Substance: TESTOSTERONE CYPIONATE
     Indication: Hypogonadism
     Dosage: 200 MG INJECTIONS, WEEKLY
     Route: 030

REACTIONS (3)
  - Toxic cardiomyopathy [Unknown]
  - Palpitations [Unknown]
  - Tachycardia [Unknown]
